FAERS Safety Report 26145643 (Version 1)
Quarter: 2025Q4

REPORT INFORMATION
  Report Type: Spontaneous
  Country: CN (occurrence: CN)
  Receive Date: 20251211
  Receipt Date: 20251211
  Transmission Date: 20260118
  Serious: Yes (Hospitalization)
  Sender: BAYER HEALTHCARE PHARMACEUTICALS INC.
  Company Number: CN-BAYER-2025A162617

PATIENT
  Age: 74 Year
  Sex: Female
  Weight: 55 kg

DRUGS (1)
  1. STIVARGA [Suspect]
     Active Substance: REGORAFENIB MONOHYDRATE
     Indication: Rectal cancer
     Dosage: 160 MG, QD
     Route: 048
     Dates: start: 20251123, end: 20251206

REACTIONS (10)
  - Oedema peripheral [Recovering/Resolving]
  - Pain of skin [Not Recovered/Not Resolved]
  - Burning sensation [Recovering/Resolving]
  - Arthralgia [Not Recovered/Not Resolved]
  - Palpitations [Recovered/Resolved]
  - Headache [Recovering/Resolving]
  - Cough [Recovering/Resolving]
  - Palmar erythema [Not Recovered/Not Resolved]
  - Peripheral swelling [Not Recovered/Not Resolved]
  - Skin temperature increased [Not Recovered/Not Resolved]

NARRATIVE: CASE EVENT DATE: 20251201
